FAERS Safety Report 19458300 (Version 1)
Quarter: 2021Q2

REPORT INFORMATION
  Report Type: Spontaneous
  Country: US (occurrence: US)
  Receive Date: 20210624
  Receipt Date: 20210624
  Transmission Date: 20210717
  Serious: Yes (Death)
  Sender: FDA-Public Use
  Company Number: None

PATIENT
  Sex: Female
  Weight: 85.05 kg

DRUGS (2)
  1. GEMCITABINE. [Suspect]
     Active Substance: GEMCITABINE
     Indication: LUNG CARCINOMA CELL TYPE UNSPECIFIED RECURRENT
     Dosage: ?          OTHER FREQUENCY:DAYS 1+8 OF21DAY;?
     Route: 042
     Dates: start: 20201106
  2. ONDANSETRON [Suspect]
     Active Substance: ONDANSETRON
     Indication: LUNG CARCINOMA CELL TYPE UNSPECIFIED STAGE 0
     Dosage: ?          OTHER FREQUENCY:DAY 1 + 8 OF 21D;?
     Route: 042
     Dates: start: 20201106

REACTIONS (1)
  - Death [None]
